FAERS Safety Report 10098062 (Version 3)
Quarter: 2014Q2

REPORT INFORMATION
  Report Type: Spontaneous
  Country: IT (occurrence: IT)
  Receive Date: 20140423
  Receipt Date: 20140624
  Transmission Date: 20141212
  Serious: Yes (Death, Hospitalization)
  Sender: FDA-Public Use
  Company Number: IT-CELGENEUS-083-21880-14034885

PATIENT
  Sex: Male

DRUGS (3)
  1. REVLIMID [Suspect]
     Indication: PLASMA CELL MYELOMA
     Dosage: 25 MILLIGRAM
     Route: 048
  2. MELPHALAN [Concomitant]
     Indication: PLASMA CELL MYELOMA
     Route: 041
  3. DEXAMETHASONE [Concomitant]
     Indication: PLASMA CELL MYELOMA
     Dosage: LOW DOSE
     Route: 065

REACTIONS (3)
  - Ischaemic stroke [Fatal]
  - Plasmacytoma [Fatal]
  - Plasma cell myeloma [Unknown]
